FAERS Safety Report 6397619-8 (Version None)
Quarter: 2009Q4

REPORT INFORMATION
  Report Type: 
  Country: None (occurrence: None)
  Receive Date: 20091012
  Receipt Date: 20091001
  Transmission Date: 20100525
  Serious: Yes (Other)
  Sender: FDA-Public Use
  Company Number: US-JNJFOC-20090708532

PATIENT
  Age: 40 Year
  Sex: Female

DRUGS (3)
  1. INVEGA [Suspect]
     Dosage: ^3 MG FOR ABOUT 2 YEARS^
     Route: 048
  2. INVEGA [Suspect]
     Indication: SCHIZOPHRENIA, UNDIFFERENTIATED TYPE
     Route: 048
  3. ALLERGY MEDICATION [Concomitant]

REACTIONS (1)
  - TARDIVE DYSKINESIA [None]
